FAERS Safety Report 25423506 (Version 2)
Quarter: 2025Q3

REPORT INFORMATION
  Report Type: Spontaneous
  Country: EU (occurrence: EU)
  Receive Date: 20250611
  Receipt Date: 20250803
  Transmission Date: 20251020
  Serious: Yes (Other)
  Sender: ALEXION PHARMACEUTICALS
  Company Number: 2025006971-000

PATIENT
  Age: 40 Year
  Sex: Female

DRUGS (1)
  1. OMEPRAZOLE [Suspect]
     Active Substance: OMEPRAZOLE

REACTIONS (3)
  - Tachycardia [Unknown]
  - Respiratory distress [Unknown]
  - Face oedema [Unknown]

NARRATIVE: CASE EVENT DATE: 20250510
